FAERS Safety Report 6014004-9 (Version None)
Quarter: 2008Q4

REPORT INFORMATION
  Report Type: 
  Country: None (occurrence: None)
  Receive Date: 20081219
  Receipt Date: 20080205
  Transmission Date: 20090506
  Serious: No
  Sender: FDA-Public Use
  Company Number: A0623710A

PATIENT
  Age: 59 Year
  Sex: Male

DRUGS (2)
  1. AVODART [Suspect]
     Indication: BENIGN PROSTATIC HYPERPLASIA
     Dosage: .5MG PER DAY
     Route: 048
     Dates: start: 20040701
  2. DOXAZOSIN MESYLATE [Concomitant]

REACTIONS (3)
  - CATHETER PLACEMENT [None]
  - DRUG INEFFECTIVE [None]
  - URINARY RETENTION [None]
